FAERS Safety Report 6042885-1 (Version None)
Quarter: 2009Q1

REPORT INFORMATION
  Report Type: 
  Country: None (occurrence: None)
  Receive Date: 20090119
  Receipt Date: 20090109
  Transmission Date: 20090719
  Serious: Yes (Hospitalization)
  Sender: FDA-Public Use
  Company Number: A0718143A

PATIENT
  Age: 61 Year
  Sex: Female
  Weight: 77.3 kg

DRUGS (2)
  1. AVANDIA [Suspect]
     Dosage: 4MG PER DAY
     Route: 048
     Dates: start: 20051011, end: 20070625
  2. ATENOLOL [Concomitant]
     Dates: start: 20000501, end: 20080817

REACTIONS (2)
  - HEART INJURY [None]
  - MYOCARDIAL INFARCTION [None]
